FAERS Safety Report 6618893-6 (Version None)
Quarter: 2010Q1

REPORT INFORMATION
  Report Type: 
  Country: None (occurrence: None)
  Receive Date: 20100308
  Receipt Date: 20100225
  Transmission Date: 20100710
  Serious: Yes (Other)
  Sender: FDA-Public Use
  Company Number: US-BAXTER-2010BH005634

PATIENT
  Sex: Male

DRUGS (2)
  1. HEPARIN SODIUM INJECTION [Suspect]
     Indication: CHEST PAIN
     Route: 040
     Dates: start: 20080201
  2. HEPARIN SODIUM INJECTION [Suspect]
     Route: 041
     Dates: start: 20080201

REACTIONS (7)
  - ECCHYMOSIS [None]
  - NAUSEA [None]
  - PAIN [None]
  - SKIN DISCOLOURATION [None]
  - SWELLING [None]
  - THROMBOCYTOPENIA [None]
  - VOMITING [None]
